FAERS Safety Report 7133506-5 (Version None)
Quarter: 2010Q4

REPORT INFORMATION
  Report Type: 
  Country: None (occurrence: None)
  Receive Date: 20101202
  Receipt Date: 20101121
  Transmission Date: 20110411
  Serious: Yes (Death)
  Sender: FDA-Public Use
  Company Number: NL-MEDIMMUNE-MEDI-0011837

PATIENT
  Sex: Female
  Weight: 4.1 kg

DRUGS (4)
  1. SYNAGIS [Suspect]
     Route: 030
     Dates: start: 20100929, end: 20100929
  2. SYNAGIS [Suspect]
     Route: 030
     Dates: start: 20101025, end: 20101025
  3. ANTIBIOTICS [Concomitant]
     Dates: start: 20101025
  4. IPRATROPIUM BROMIDE [Concomitant]
     Route: 055
     Dates: start: 20100925

REACTIONS (6)
  - ADVERSE EVENT [None]
  - DECREASED APPETITE [None]
  - DYSPNOEA [None]
  - OLIGODIPSIA [None]
  - PYREXIA [None]
  - RESTLESSNESS [None]
